FAERS Safety Report 17822839 (Version 1)
Quarter: 2020Q2

REPORT INFORMATION
  Report Type: Spontaneous
  Country: US (occurrence: US)
  Receive Date: 20200526
  Receipt Date: 20200526
  Transmission Date: 20200714
  Serious: No
  Sender: FDA-Public Use
  Company Number: US-BEH-2020117465

PATIENT
  Age: 17 Year
  Sex: Female

DRUGS (9)
  1. HIZENTRA [Suspect]
     Active Substance: HUMAN IMMUNOGLOBULIN G
     Dosage: 4 MILLIGRAM, TOT
     Route: 058
     Dates: start: 20200428
  2. HIZENTRA [Suspect]
     Active Substance: HUMAN IMMUNOGLOBULIN G
     Dosage: 1 MILLIGRAM, TOT
     Route: 058
     Dates: start: 20200511
  3. HIZENTRA [Suspect]
     Active Substance: HUMAN IMMUNOGLOBULIN G
     Dosage: 4 MILLIGRAM, TOT
     Route: 058
     Dates: start: 20200511
  4. HIZENTRA [Suspect]
     Active Substance: HUMAN IMMUNOGLOBULIN G
     Dosage: 1 MILLIGRAM, TOT
     Route: 058
     Dates: start: 20200428
  5. HIZENTRA [Suspect]
     Active Substance: HUMAN IMMUNOGLOBULIN G
     Dosage: 5 MILLIGRAM, TOT
     Route: 058
     Dates: start: 20200504, end: 20200504
  6. HIZENTRA [Suspect]
     Active Substance: HUMAN IMMUNOGLOBULIN G
     Indication: HYPOGAMMAGLOBULINAEMIA
     Dosage: 5 MILLIGRAM, QW
     Route: 058
     Dates: start: 20191020
  7. BENADRYL [Concomitant]
     Active Substance: DIPHENHYDRAMINE HYDROCHLORIDE
     Dosage: 50 MILLIGRAM, TOT
     Route: 065
     Dates: start: 20200504, end: 20200504
  8. BENADRYL [Concomitant]
     Active Substance: DIPHENHYDRAMINE HYDROCHLORIDE
     Dosage: 25 MILLIGRAM, TOT
     Route: 065
     Dates: start: 20200511, end: 20200511
  9. BENADRYL [Concomitant]
     Active Substance: DIPHENHYDRAMINE HYDROCHLORIDE
     Indication: PREMEDICATION
     Dosage: 25 MILLIGRAM
     Route: 065
     Dates: start: 201910

REACTIONS (8)
  - Infusion site urticaria [Recovered/Resolved]
  - Infusion site erythema [Recovered/Resolved]
  - Rash [Recovered/Resolved]
  - Infusion site pruritus [Recovered/Resolved]
  - Rash [Recovered/Resolved]
  - Infusion site pruritus [Recovered/Resolved]
  - Infusion site urticaria [Recovered/Resolved]
  - Infusion site erythema [Recovered/Resolved]

NARRATIVE: CASE EVENT DATE: 20200428
